FAERS Safety Report 9536640 (Version 1)
Quarter: 2013Q2

REPORT INFORMATION
  Report Type: Spontaneous
  Country: US (occurrence: None)
  Receive Date: 20130507
  Receipt Date: 20130507
  Transmission Date: 20140414
  Serious: No
  Sender: FDA-Public Use
  Company Number: PHEH2012US024010

PATIENT
  Age: 48 Year
  Sex: Female

DRUGS (12)
  1. AFINITOR (RAD) UNKNOWN [Suspect]
     Indication: TUBEROUS SCLEROSIS
     Route: 048
     Dates: start: 20121022
  2. LEVOCARNITINE (LEVOCARNITINE) [Concomitant]
  3. DEPAKOTE (VALPROATE SEMISODIUM) [Concomitant]
  4. LEVOTHYROXINE (LEVOTHYROXINE) [Concomitant]
  5. BANZIL (SQUALANE, TOCOPHEROL, UREA) [Concomitant]
  6. CLONAZEPAM IC (CLONAZEPAM) [Concomitant]
  7. VITAMIN D (ERGOCALCIFEROL) [Concomitant]
  8. CALCIUM (CALCIUM) [Concomitant]
  9. NITROFURANTOIN [Concomitant]
  10. VITAMIN (ASCORBIC ACID, CALCIUM PANTOTHENATE, CALCIUM PHOSPHATE, ERGOCALCIFEROL, FERROUS FUMARATE) [Concomitant]
  11. OXYBUTIN (OXYBUTYNIN HYDROCHLORIDE) [Concomitant]
  12. DIGOXINE (DIGOXIN) [Concomitant]

REACTIONS (6)
  - Convulsion [None]
  - Lip pain [None]
  - Stomatitis [None]
  - Decreased appetite [None]
  - Cough [None]
  - Nasopharyngitis [None]
